FAERS Safety Report 6181858-5 (Version None)
Quarter: 2009Q2

REPORT INFORMATION
  Report Type: 
  Country: None (occurrence: None)
  Receive Date: 20090504
  Receipt Date: 20090423
  Transmission Date: 20091009
  Serious: Yes (Hospitalization)
  Sender: FDA-Public Use
  Company Number: 2009AL002504

PATIENT
  Age: 33 Year
  Sex: Female

DRUGS (10)
  1. TRAMADOL HYDROCHLORIDE [Suspect]
     Indication: ANALGESIA
     Dosage: 100 MG; IV
     Route: 042
     Dates: start: 20090324, end: 20090324
  2. FENTANYL [Concomitant]
  3. PROPOFOL [Concomitant]
  4. PARACETAMOL [Concomitant]
  5. VOLTAREN [Concomitant]
  6. LIGNOCAINE [Concomitant]
  7. LEVOBUPIVACAINE [Concomitant]
  8. ONDANSETRON [Concomitant]
  9. IRON [Concomitant]
  10. CONTRACEPTIVE PILL [Concomitant]

REACTIONS (1)
  - OCULOGYRIC CRISIS [None]
